FAERS Safety Report 23673535 (Version 1)
Quarter: 2024Q1

REPORT INFORMATION
  Report Type: Spontaneous
  Country: US (occurrence: US)
  Receive Date: 20240326
  Receipt Date: 20240326
  Transmission Date: 20240409
  Serious: No
  Sender: FDA-Public Use
  Company Number: US-Mission Pharmacal Company-2154822

PATIENT
  Age: 55 Year
  Sex: Male

DRUGS (1)
  1. THIOLA EC [Suspect]
     Active Substance: TIOPRONIN
     Indication: Cystinuria
     Route: 048
     Dates: start: 20211001

REACTIONS (4)
  - Depression [Unknown]
  - Dyspepsia [Unknown]
  - Drug ineffective [Unknown]
  - Product dose omission issue [Unknown]
